FAERS Safety Report 11691037 (Version 3)
Quarter: 2015Q4

REPORT INFORMATION
  Report Type: Spontaneous
  Country: US (occurrence: US)
  Receive Date: 20151102
  Receipt Date: 20151231
  Transmission Date: 20160304
  Serious: No
  Sender: FDA-Public Use
  Company Number: US-GLAXOSMITHKLINE-US2015155615

PATIENT
  Age: 65 Year
  Sex: Female

DRUGS (2)
  1. NICODERM CQ [Suspect]
     Active Substance: NICOTINE
     Indication: SMOKING CESSATION THERAPY
     Dosage: 21 MG, UNK
     Dates: start: 2013
  2. NICORETTE [Suspect]
     Active Substance: NICOTINE
     Indication: SMOKING CESSATION THERAPY
     Dosage: UNK
     Dates: start: 2005

REACTIONS (17)
  - Psychomotor hyperactivity [Recovered/Resolved]
  - Application site erythema [Recovered/Resolved]
  - Abnormal dreams [Recovered/Resolved]
  - Feeling abnormal [Unknown]
  - Nicotine dependence [Unknown]
  - Hypersensitivity [Unknown]
  - Dissociation [Recovered/Resolved]
  - Oral disorder [Unknown]
  - Overdose [Recovered/Resolved]
  - Insomnia [Recovered/Resolved]
  - Tremor [Recovered/Resolved]
  - Product quality issue [Unknown]
  - Stomatitis [Recovered/Resolved]
  - Vomiting [Recovered/Resolved]
  - Nervousness [Recovered/Resolved]
  - Ill-defined disorder [Recovered/Resolved]
  - Application site pruritus [Recovered/Resolved]
